FAERS Safety Report 8355452-1 (Version None)
Quarter: 2012Q2

REPORT INFORMATION
  Report Type: 
  Country: None (occurrence: None)
  Receive Date: 20120511
  Receipt Date: 20120427
  Transmission Date: 20120825
  Serious: Yes (Other)
  Sender: FDA-Public Use
  Company Number: CHPA2012US009420

PATIENT
  Age: 71 Year
  Sex: Female

DRUGS (2)
  1. EXCEDRIN (MIGRAINE) [Suspect]
     Indication: HEADACHE
     Dosage: UNK, UNK
     Route: 048
  2. EXCEDRIN TENSION HEADACHE CAPLETS [Suspect]
     Dosage: 2 DF, PRN
     Route: 048

REACTIONS (2)
  - ROTATOR CUFF SYNDROME [None]
  - THERAPEUTIC RESPONSE UNEXPECTED [None]
